FAERS Safety Report 8320453-6 (Version None)
Quarter: 2012Q2

REPORT INFORMATION
  Report Type: 
  Country: None (occurrence: None)
  Receive Date: 20120426
  Receipt Date: 20120426
  Transmission Date: 20120825
  Serious: No
  Sender: FDA-Public Use
  Company Number: None

PATIENT
  Sex: Male
  Weight: 90.45 kg

DRUGS (1)
  1. ERBITUX [Suspect]
     Dosage: 20 ML

REACTIONS (7)
  - PRURITUS [None]
  - NAUSEA [None]
  - MUSCULOSKELETAL DISCOMFORT [None]
  - CHEST DISCOMFORT [None]
  - INCREASED UPPER AIRWAY SECRETION [None]
  - TREMOR [None]
  - COUGH [None]
